FAERS Safety Report 5903337-X (Version None)
Quarter: 2008Q3

REPORT INFORMATION
  Report Type: 
  Country: None (occurrence: None)
  Receive Date: 20080926
  Receipt Date: 20080818
  Transmission Date: 20090109
  Serious: No
  Sender: FDA-Public Use
  Company Number: ADE# 08-131

PATIENT
  Age: 67 Year
  Sex: Male
  Weight: 108.8633 kg

DRUGS (4)
  1. TICLOPIDINE HYDROCHLORIDE [Suspect]
     Indication: STENT PLACEMENT
     Dosage: 1 TABLET TWICE DAILY
     Dates: start: 20080701
  2. TRICOR [Concomitant]
  3. ATENOLOL [Concomitant]
  4. LISINOPRIL [Concomitant]

REACTIONS (1)
  - DIARRHOEA [None]
